APPROVED DRUG PRODUCT: COTEMPLA XR-ODT
Active Ingredient: METHYLPHENIDATE
Strength: 34.6MG
Dosage Form/Route: TABLET, ORALLY DISINTEGRATING, EXTENDED RELEASE;ORAL
Application: N205489 | Product #004
Applicant: NEOS THERAPEUTICS INC
Approved: Aug 19, 2024 | RLD: Yes | RS: No | Type: DISCN